FAERS Safety Report 5507840-6 (Version None)
Quarter: 2007Q4

REPORT INFORMATION
  Report Type: 
  Country: None (occurrence: None)
  Receive Date: 20071031
  Receipt Date: 20070626
  Transmission Date: 20080405
  Serious: No
  Sender: FDA-Public Use
  Company Number: PHEH2007US09321

PATIENT

DRUGS (1)
  1. TELBIVUDINE                                     (TELBIVUDINE) UNKNOWN [Suspect]

REACTIONS (1)
  - NAUSEA [None]
